FAERS Safety Report 5531032-8 (Version None)
Quarter: 2007Q4

REPORT INFORMATION
  Report Type: 
  Country: None (occurrence: None)
  Receive Date: 20071130
  Receipt Date: 20071119
  Transmission Date: 20080405
  Serious: Yes (Hospitalization)
  Sender: FDA-Public Use
  Company Number: FR-PFIZER INC-2007098063

PATIENT
  Sex: Female

DRUGS (5)
  1. GENOTONORM [Suspect]
     Indication: GROWTH RETARDATION
     Route: 058
  2. PREDNISONE TAB [Concomitant]
     Route: 048
  3. CALCIUM WITH VITAMIN D [Concomitant]
     Route: 048
     Dates: start: 20010101
  4. KINERET [Concomitant]
     Indication: OCULAR HYPERTENSION
     Route: 058
  5. CARTEOLOL HYDROCHLORIDE [Concomitant]
     Route: 047

REACTIONS (2)
  - ASTHENIA [None]
  - PYREXIA [None]
